FAERS Safety Report 10332225 (Version 2)
Quarter: 2014Q4

REPORT INFORMATION
  Report Type: Report from Study
  Country: US (occurrence: US)
  Receive Date: 20140722
  Receipt Date: 20141113
  Transmission Date: 20150528
  Serious: Yes (Other)
  Sender: FDA-Public Use
  Company Number: US-BRISTOL-MYERS SQUIBB COMPANY-21199898

PATIENT
  Age: 57 Year
  Sex: Female

DRUGS (1)
  1. ORENCIA [Suspect]
     Active Substance: ABATACEPT
     Route: 058

REACTIONS (5)
  - Fall [Unknown]
  - Joint injury [Unknown]
  - Adverse event [Unknown]
  - Drug ineffective [Unknown]
  - Rotator cuff syndrome [Unknown]
